FAERS Safety Report 7349610-2 (Version None)
Quarter: 2011Q1

REPORT INFORMATION
  Report Type: 
  Country: None (occurrence: None)
  Receive Date: 20110225
  Receipt Date: 20101201
  Transmission Date: 20110831
  Serious: No
  Sender: FDA-Public Use
  Company Number: 319429

PATIENT
  Age: 58 Year
  Sex: Female

DRUGS (2)
  1. VICTOZA [Suspect]
     Indication: WEIGHT DECREASED
     Dosage: SUBCUTANEOUS, SUBCUTANEOUS
     Route: 058
  2. LIPITOR [Concomitant]

REACTIONS (3)
  - HEADACHE [None]
  - NAUSEA [None]
  - DEVICE MALFUNCTION [None]
